FAERS Safety Report 18330725 (Version 3)
Quarter: 2020Q4

REPORT INFORMATION
  Report Type: Spontaneous
  Country: US (occurrence: US)
  Receive Date: 20200930
  Receipt Date: 20201225
  Transmission Date: 20210113
  Serious: Yes (Death, Hospitalization, Other)
  Sender: FDA-Public Use
  Company Number: US-ASTRAZENECA-2018SF26497

PATIENT
  Age: 26186 Day
  Sex: Female
  Weight: 56.2 kg

DRUGS (94)
  1. METRONIDAZOLE. [Concomitant]
     Active Substance: METRONIDAZOLE
  2. PRILOSEC [Suspect]
     Active Substance: OMEPRAZOLE MAGNESIUM
     Indication: GASTROOESOPHAGEAL REFLUX DISEASE
     Route: 048
     Dates: start: 1998, end: 2017
  3. PANTOPRAZOLE [Suspect]
     Active Substance: PANTOPRAZOLE
     Dosage: 40 MG ONCE A DAY AND/OR TWO TIMES A DAY
     Route: 065
     Dates: start: 2013
  4. ALLEGRA [Concomitant]
     Active Substance: FEXOFENADINE HYDROCHLORIDE
     Indication: URTICARIA
     Dates: start: 2000
  5. ALLEGRA [Concomitant]
     Active Substance: FEXOFENADINE HYDROCHLORIDE
     Indication: PRURITUS
     Dates: start: 2003
  6. AMOX TR-POTASSIUM [Concomitant]
     Indication: BACTERIAL INFECTION
     Dates: start: 2013
  7. AMOXICILLIN. [Concomitant]
     Active Substance: AMOXICILLIN
     Indication: GASTRIC ULCER
     Dates: start: 2007, end: 2008
  8. AQUATAB DM [Concomitant]
     Indication: RESPIRATION ABNORMAL
     Dates: start: 2000
  9. BIAXIN [Concomitant]
     Active Substance: CLARITHROMYCIN
     Indication: INFECTION
     Dates: start: 1998
  10. CHLORDIAZEPOXIDE CLIDINIUM [Concomitant]
     Active Substance: CHLORDIAZEPOXIDE HYDROCHLORIDE\CLIDINIUM BROMIDE
     Indication: ULCER
     Dates: start: 2007
  11. CRESTOR [Concomitant]
     Active Substance: ROSUVASTATIN CALCIUM
     Indication: BLOOD CHOLESTEROL INCREASED
     Dates: start: 2005
  12. HYDROXYZINE [Concomitant]
     Active Substance: HYDROXYZINE HYDROCHLORIDE
     Indication: NAUSEA
     Dates: start: 2011
  13. TIOTROPIUM [Concomitant]
     Active Substance: TIOTROPIUM
  14. PRILOSEC [Suspect]
     Active Substance: OMEPRAZOLE MAGNESIUM
     Indication: GASTROOESOPHAGEAL REFLUX DISEASE
     Dosage: 20 MG ONCE A DAY AND/OR TWO TIMES A DAY
     Route: 048
     Dates: start: 1998, end: 2001
  15. PREVACID [Suspect]
     Active Substance: LANSOPRAZOLE
     Indication: GASTROOESOPHAGEAL REFLUX DISEASE
     Route: 065
     Dates: start: 1998, end: 2017
  16. ATROVENT [Concomitant]
     Active Substance: IPRATROPIUM BROMIDE
     Indication: ASTHMA
     Dates: start: 2001
  17. BENZONATATE. [Concomitant]
     Active Substance: BENZONATATE
     Indication: COUGH
     Dates: start: 2008
  18. CALCITROL [Concomitant]
     Indication: BLOOD CALCIUM DECREASED
     Dates: start: 2015, end: 2017
  19. CLOPIDOGREL [Concomitant]
     Active Substance: CLOPIDOGREL BISULFATE
     Indication: ANTICOAGULANT THERAPY
     Dates: start: 2012, end: 2018
  20. CRESTOR [Concomitant]
     Active Substance: ROSUVASTATIN CALCIUM
     Indication: BLOOD TRIGLYCERIDES ABNORMAL
     Dates: start: 2005
  21. HYDROCORTISONE. [Concomitant]
     Active Substance: HYDROCORTISONE
     Indication: SKIN DISORDER
     Dates: start: 2011
  22. ASPIRIN. [Concomitant]
     Active Substance: ASPIRIN
     Indication: CEREBROVASCULAR ACCIDENT
     Dates: start: 2019
  23. FIDAXOMICIN [Concomitant]
     Active Substance: FIDAXOMICIN
  24. NEXIUM [Suspect]
     Active Substance: ESOMEPRAZOLE MAGNESIUM
     Indication: GASTROOESOPHAGEAL REFLUX DISEASE
     Dosage: 40 MG ONCE A DAY AND TWO TIMES A DAY
     Route: 048
     Dates: start: 2002, end: 2004
  25. ADVAIR DISKUS [Concomitant]
     Active Substance: FLUTICASONE PROPIONATE\SALMETEROL XINAFOATE
     Indication: CHRONIC OBSTRUCTIVE PULMONARY DISEASE
     Dates: start: 2002
  26. ALBUTEROL. [Concomitant]
     Active Substance: ALBUTEROL
     Indication: BRONCHOSPASM
     Dates: start: 2010
  27. ALLEGRA [Concomitant]
     Active Substance: FEXOFENADINE HYDROCHLORIDE
     Indication: URTICARIA
     Dates: start: 1998
  28. ALLEGRA [Concomitant]
     Active Substance: FEXOFENADINE HYDROCHLORIDE
     Indication: PRURITUS
     Dates: start: 1998
  29. ALPRAZOLAM. [Concomitant]
     Active Substance: ALPRAZOLAM
     Indication: ANXIETY
     Dates: start: 2012
  30. AMITRIPTYLINE [Concomitant]
     Active Substance: AMITRIPTYLINE
     Indication: DEPRESSION
     Dates: start: 2003, end: 2004
  31. AMOXICILLIN. [Concomitant]
     Active Substance: AMOXICILLIN
     Indication: INFECTION
     Dates: start: 2007, end: 2008
  32. AUGMENTIN [Concomitant]
     Active Substance: AMOXICILLIN\CLAVULANATE POTASSIUM
     Indication: INFECTION
     Dates: start: 1998
  33. CARAFATE [Concomitant]
     Active Substance: SUCRALFATE
     Indication: ULCER
     Dates: start: 2013, end: 2014
  34. CATAPRES-TTS [Concomitant]
     Active Substance: CLONIDINE
     Indication: HYPERTENSION
     Dates: start: 2004, end: 2005
  35. CATAPRES-TTS [Concomitant]
     Active Substance: CLONIDINE
     Indication: CANCER PAIN
     Dates: start: 2004, end: 2005
  36. CYCLOBENZAPRINE. [Concomitant]
     Active Substance: CYCLOBENZAPRINE
     Indication: PAIN
     Dates: start: 2000, end: 2001
  37. DIAZEPAM. [Concomitant]
     Active Substance: DIAZEPAM
  38. NEXIUM [Suspect]
     Active Substance: ESOMEPRAZOLE MAGNESIUM
     Indication: GASTROOESOPHAGEAL REFLUX DISEASE
     Dosage: 40 MG ONCE A DAY AND TWO TIMES A DAY
     Route: 048
     Dates: start: 2007
  39. ALBUTEROL. [Concomitant]
     Active Substance: ALBUTEROL
     Indication: BRONCHOSPASM
     Dates: start: 1998, end: 1999
  40. ALLEGRA [Concomitant]
     Active Substance: FEXOFENADINE HYDROCHLORIDE
     Indication: URTICARIA
     Dates: start: 2003
  41. AMLODIPINE [Concomitant]
     Active Substance: AMLODIPINE BESYLATE
     Indication: HYPERTENSION
     Dates: start: 2008
  42. AQUATAB DM [Concomitant]
     Indication: COUGH
     Dates: start: 2000
  43. BACTROBAN [Concomitant]
     Active Substance: MUPIROCIN\MUPIROCIN CALCIUM
     Indication: SKIN INFECTION
     Dates: start: 1998
  44. CEFDINIR. [Concomitant]
     Active Substance: CEFDINIR
     Indication: BACTERIAL INFECTION
     Dates: start: 2011, end: 2012
  45. ASPIRIN. [Concomitant]
     Active Substance: ASPIRIN
     Indication: CARDIAC DISORDER
     Dates: start: 2019
  46. HYDROCODONE/ACETAMINOPHEN [Concomitant]
     Active Substance: ACETAMINOPHEN\HYDROCODONE
  47. SILENOR [Concomitant]
     Active Substance: DOXEPIN HYDROCHLORIDE
  48. ACIJEL [Concomitant]
     Indication: ACID BASE BALANCE
     Dates: start: 1998, end: 1999
  49. AGGRENOX [Concomitant]
     Active Substance: ASPIRIN\DIPYRIDAMOLE
     Indication: CEREBROVASCULAR ACCIDENT
     Dates: start: 2013
  50. ALBUTEROL. [Concomitant]
     Active Substance: ALBUTEROL
     Indication: BRONCHOSPASM
     Dates: start: 2014
  51. ALLEGRA [Concomitant]
     Active Substance: FEXOFENADINE HYDROCHLORIDE
     Indication: SEASONAL ALLERGY
     Dates: start: 2000
  52. AMLODIPINE [Concomitant]
     Active Substance: AMLODIPINE BESYLATE
     Indication: CHEST PAIN
     Dates: start: 2008
  53. ATROVENT [Concomitant]
     Active Substance: IPRATROPIUM BROMIDE
     Indication: CHRONIC OBSTRUCTIVE PULMONARY DISEASE
     Dates: start: 2001
  54. AVELOX [Concomitant]
     Active Substance: MOXIFLOXACIN HYDROCHLORIDE
     Indication: INFECTION
     Dates: start: 2003
  55. AZITHROMYCIN ANHYDROUS. [Concomitant]
     Active Substance: AZITHROMYCIN ANHYDROUS
     Indication: INFECTION
     Dates: start: 2017, end: 2018
  56. BIAXIN [Concomitant]
     Active Substance: CLARITHROMYCIN
     Indication: DUODENAL ULCER
     Dates: start: 1998
  57. CALCITROL [Concomitant]
     Indication: BONE DISORDER
     Dates: start: 2015, end: 2017
  58. CHLORDIAZEPOXIDE CLIDINIUM [Concomitant]
     Active Substance: CHLORDIAZEPOXIDE HYDROCHLORIDE\CLIDINIUM BROMIDE
     Indication: INFLAMMATORY BOWEL DISEASE
     Dates: start: 2007
  59. CILOSTAZOL. [Concomitant]
     Active Substance: CILOSTAZOL
     Dates: start: 2010
  60. HYDROXYZINE [Concomitant]
     Active Substance: HYDROXYZINE HYDROCHLORIDE
     Indication: URTICARIA
     Dates: start: 2011
  61. BENZONATATE. [Concomitant]
     Active Substance: BENZONATATE
  62. DURADRIN [Concomitant]
     Active Substance: ACETAMINOPHEN\DICHLORALPHENAZONE\ISOMETHEPTENE MUCATE
  63. NEXIUM [Suspect]
     Active Substance: ESOMEPRAZOLE MAGNESIUM
     Indication: GASTROOESOPHAGEAL REFLUX DISEASE
     Dosage: 40 MG ONCE A DAY AND TWO TIMES A DAY
     Route: 048
     Dates: start: 2009, end: 2014
  64. ALPRAZOLAM. [Concomitant]
     Active Substance: ALPRAZOLAM
     Indication: PANIC DISORDER
     Dates: start: 2012
  65. AQUATAB DM [Concomitant]
     Indication: BRONCHITIS
     Dates: start: 2000
  66. BETAMETHASONE. [Concomitant]
     Active Substance: BETAMETHASONE
     Indication: INFLAMMATION
     Dates: start: 1998, end: 1999
  67. BUSPIRONE HCL [Concomitant]
     Active Substance: BUSPIRONE HYDROCHLORIDE
     Indication: ANXIETY
     Dates: start: 2015, end: 2017
  68. CYCLOBENZAPRINE. [Concomitant]
     Active Substance: CYCLOBENZAPRINE
     Indication: MUSCULOSKELETAL STIFFNESS
     Dates: start: 2000, end: 2001
  69. HYDROXYZINE [Concomitant]
     Active Substance: HYDROXYZINE HYDROCHLORIDE
     Indication: ANXIETY
     Dates: start: 2011
  70. VERAPAMIL [Concomitant]
     Active Substance: VERAPAMIL HYDROCHLORIDE
  71. NEXIUM [Suspect]
     Active Substance: ESOMEPRAZOLE MAGNESIUM
     Indication: GASTROOESOPHAGEAL REFLUX DISEASE
     Route: 048
     Dates: start: 1998, end: 2017
  72. DEXILANT [Suspect]
     Active Substance: DEXLANSOPRAZOLE
     Indication: GASTROOESOPHAGEAL REFLUX DISEASE
     Dosage: 60 MG ONCE A DAY AND/OR TWO TIMES A DAY
     Route: 065
     Dates: start: 2012
  73. ALLEGRA [Concomitant]
     Active Substance: FEXOFENADINE HYDROCHLORIDE
     Indication: SEASONAL ALLERGY
     Dates: start: 2003
  74. AMBIEN [Concomitant]
     Active Substance: ZOLPIDEM TARTRATE
     Indication: INSOMNIA
     Dates: start: 2001, end: 2017
  75. AMITRIPTYLINE [Concomitant]
     Active Substance: AMITRIPTYLINE
     Indication: NEURALGIA
     Dates: start: 1998
  76. AMITRIPTYLINE [Concomitant]
     Active Substance: AMITRIPTYLINE
     Indication: NEURALGIA
     Dates: start: 2003, end: 2004
  77. AVAPRO [Concomitant]
     Active Substance: IRBESARTAN
     Indication: HYPERTENSION
     Dates: start: 1998, end: 1999
  78. BUSPIRONE HCL [Concomitant]
     Active Substance: BUSPIRONE HYDROCHLORIDE
     Indication: ANXIETY
     Dates: start: 2015, end: 2017
  79. CATAPRES-TTS [Concomitant]
     Active Substance: CLONIDINE
     Indication: ATTENTION DEFICIT HYPERACTIVITY DISORDER
     Dates: start: 2004, end: 2005
  80. CHANTIX [Concomitant]
     Active Substance: VARENICLINE TARTRATE
     Indication: SMOKING CESSATION THERAPY
     Dates: start: 2011
  81. CIPROFLOXACIN. [Concomitant]
     Active Substance: CIPROFLOXACIN
     Indication: INFECTION
     Dates: start: 2008
  82. CITALOPRAM [Concomitant]
     Active Substance: CITALOPRAM HYDROBROMIDE
     Indication: DEPRESSION
     Dates: start: 2008
  83. CLINDAMYCIN. [Concomitant]
     Active Substance: CLINDAMYCIN
     Indication: INFECTION
     Dates: start: 2013
  84. HYDROXYZINE [Concomitant]
     Active Substance: HYDROXYZINE HYDROCHLORIDE
     Indication: VOMITING
     Dates: start: 2011
  85. HYDROXYZINE [Concomitant]
     Active Substance: HYDROXYZINE HYDROCHLORIDE
     Indication: RASH
     Dates: start: 2011
  86. PRAVASTATIN. [Concomitant]
     Active Substance: PRAVASTATIN
  87. TRENTAL [Concomitant]
     Active Substance: PENTOXIFYLLINE
  88. CALCITROL [Concomitant]
     Indication: PSORIASIS
     Dates: start: 2015, end: 2017
  89. NEXIUM [Suspect]
     Active Substance: ESOMEPRAZOLE MAGNESIUM
     Indication: GASTROOESOPHAGEAL REFLUX DISEASE
     Dosage: GENERIC-40 MG ONCE A DAY AND TWO TIMES A DAY
     Route: 065
     Dates: start: 2015, end: 2017
  90. PREVACID [Suspect]
     Active Substance: LANSOPRAZOLE
     Indication: GASTROOESOPHAGEAL REFLUX DISEASE
     Dosage: 30 MG ONCE A DAY AND/OR TWO TIMES A DAY
     Route: 065
     Dates: start: 1999
  91. ALLEGRA [Concomitant]
     Active Substance: FEXOFENADINE HYDROCHLORIDE
     Indication: SEASONAL ALLERGY
     Dates: start: 1998
  92. ALLEGRA [Concomitant]
     Active Substance: FEXOFENADINE HYDROCHLORIDE
     Indication: PRURITUS
     Dates: start: 2000
  93. AMITRIPTYLINE [Concomitant]
     Active Substance: AMITRIPTYLINE
     Indication: DEPRESSION
     Dates: start: 1998
  94. AVAPRO [Concomitant]
     Active Substance: IRBESARTAN
     Indication: DIABETIC NEPHROPATHY
     Dates: start: 1998, end: 1999

REACTIONS (8)
  - Chronic kidney disease [Fatal]
  - Acute respiratory failure [Fatal]
  - Acute left ventricular failure [Fatal]
  - Acute kidney injury [Unknown]
  - End stage renal disease [Unknown]
  - Acute coronary syndrome [Fatal]
  - Renal failure [Unknown]
  - Nephritis [Unknown]

NARRATIVE: CASE EVENT DATE: 20141113
